FAERS Safety Report 4741822-7 (Version None)
Quarter: 2005Q3

REPORT INFORMATION
  Report Type: 
  Country: None (occurrence: None)
  Receive Date: 20050801
  Receipt Date: 20050621
  Transmission Date: 20060218
  Serious: No
  Sender: FDA-Public Use
  Company Number: 2005PV000096

PATIENT
  Age: 59 Year
  Sex: Female
  Weight: 95.2554 kg

DRUGS (13)
  1. BYETTA [Suspect]
     Indication: DIABETES MELLITUS NON-INSULIN-DEPENDENT
     Dosage: 5 UG;BID;SC
     Route: 058
     Dates: start: 20050614
  2. METFORMIN [Concomitant]
  3. AVANDIA [Concomitant]
  4. VYTORIN [Concomitant]
  5. PREVACID [Concomitant]
  6. LEXAPRO [Concomitant]
  7. TIZANIDINE HCL [Concomitant]
  8. ATENOLOL [Concomitant]
  9. SENNA [Concomitant]
  10. NORVASC [Concomitant]
  11. FANCTURA [Concomitant]
  12. CEREFOLIN [Concomitant]
  13. EVISTA [Concomitant]

REACTIONS (4)
  - CONDITION AGGRAVATED [None]
  - DECREASED APPETITE [None]
  - NAUSEA [None]
  - TREMOR [None]
